FAERS Safety Report 18556375 (Version 1)
Quarter: 2020Q4

REPORT INFORMATION
  Report Type: Spontaneous
  Country: US (occurrence: US)
  Receive Date: 20201128
  Receipt Date: 20201128
  Transmission Date: 20210114
  Serious: Yes (Other)
  Sender: FDA-Public Use
  Company Number: US-009507513-2011USA015099

PATIENT
  Age: 78 Year
  Sex: Female

DRUGS (5)
  1. JANUVIA [Suspect]
     Active Substance: SITAGLIPTIN PHOSPHATE
     Indication: BLOOD GLUCOSE ABNORMAL
     Dosage: 25 MILLIGRAMS
     Route: 048
  2. METOPROLOL. [Concomitant]
     Active Substance: METOPROLOL
  3. ASPIRIN. [Concomitant]
     Active Substance: ASPIRIN
  4. IRBESARTAN. [Concomitant]
     Active Substance: IRBESARTAN
  5. JANUVIA [Suspect]
     Active Substance: SITAGLIPTIN PHOSPHATE
     Dosage: 50 MILLIGRAM, ONCE DAILY
     Route: 048
     Dates: start: 20201123

REACTIONS (1)
  - Melaena [Not Recovered/Not Resolved]

NARRATIVE: CASE EVENT DATE: 20201124
